FAERS Safety Report 10586624 (Version 1)
Quarter: 2014Q4

REPORT INFORMATION
  Report Type: Spontaneous
  Country: US (occurrence: US)
  Receive Date: 20141117
  Receipt Date: 20141117
  Transmission Date: 20150529
  Serious: No
  Sender: FDA-Public Use
  Company Number: US-BIOGENIDEC-2014BI118891

PATIENT
  Age: 51 Year
  Sex: Female

DRUGS (4)
  1. LAMICTAL ODT [Concomitant]
     Active Substance: LAMOTRIGINE
  2. XANAX [Concomitant]
     Active Substance: ALPRAZOLAM
  3. COUMADIN [Concomitant]
     Active Substance: WARFARIN SODIUM
  4. AVONEX [Suspect]
     Active Substance: INTERFERON BETA-1A
     Indication: MULTIPLE SCLEROSIS
     Route: 030
     Dates: start: 20140415

REACTIONS (1)
  - Injection site rash [Not Recovered/Not Resolved]

NARRATIVE: CASE EVENT DATE: 20141031
